FAERS Safety Report 5914951-X (Version None)
Quarter: 2008Q4

REPORT INFORMATION
  Report Type: 
  Country: None (occurrence: None)
  Receive Date: 20081010
  Receipt Date: 20080930
  Transmission Date: 20090506
  Serious: Yes (Other)
  Sender: FDA-Public Use
  Company Number: US-AVENTIS-200815556US

PATIENT
  Sex: Female

DRUGS (6)
  1. LANTUS [Suspect]
     Route: 058
  2. OPTICLIK (INSULIN INJECTION PEN) [Suspect]
  3. NOVOLOG [Concomitant]
     Dosage: DOSE: UNK
  4. METFORMIN HCL [Concomitant]
     Dosage: DOSE: UNK
  5. ZETIA [Concomitant]
     Dosage: DOSE: UNK
  6. MICARDIS [Concomitant]
     Dosage: DOSE: UNK

REACTIONS (3)
  - BLINDNESS UNILATERAL [None]
  - DIABETIC RETINOPATHY [None]
  - INJECTION SITE PAIN [None]
